FAERS Safety Report 7430052-6 (Version None)
Quarter: 2011Q2

REPORT INFORMATION
  Report Type: 
  Country: None (occurrence: None)
  Receive Date: 20110421
  Receipt Date: 20091122
  Transmission Date: 20111010
  Serious: Yes (Death, Other)
  Sender: FDA-Public Use
  Company Number: US-BAYER-200940222NA

PATIENT
  Age: 67 Year
  Sex: Male
  Weight: 100 kg

DRUGS (13)
  1. LASIX [Concomitant]
     Dosage: 40 MG, BID
     Route: 048
  2. CARDIZEM CD [Concomitant]
     Dosage: 300 MG, QD
     Route: 048
     Dates: start: 20020901
  3. ASPIRIN [Concomitant]
     Dosage: 325 MG LONGTERM, QD
     Route: 048
  4. MUCOMYST [Concomitant]
     Dosage: UNK, INHALATION
     Dates: start: 20020901
  5. HUMALOG [Concomitant]
     Dosage: 10 U, UNK
     Route: 058
  6. TOPROL-XL [Concomitant]
     Dosage: 100 MG LONG TERM, QD
     Route: 048
  7. TIAZAC [Concomitant]
     Dosage: 300 MG LONG TERM, HS
     Route: 048
  8. PLAVIX [Concomitant]
     Dosage: 75 MG, QD
     Route: 048
  9. IMDUR [Concomitant]
     Dosage: 60 MG LONGTERM, QD
     Route: 048
  10. NPH INSULIN [Concomitant]
     Dosage: 13 U IN MORNING AND AT BEDTIME LONG TERM
     Route: 058
  11. LIPITOR [Concomitant]
     Dosage: 10 MG, QD
     Route: 048
  12. TRASYLOL [Suspect]
     Indication: CORONARY ARTERY BYPASS
     Route: 042
     Dates: start: 20031201
  13. ATACAND [Concomitant]
     Dosage: 32 MG LONG TERM, QD
     Route: 048

REACTIONS (13)
  - EMOTIONAL DISTRESS [None]
  - UNEVALUABLE EVENT [None]
  - MULTI-ORGAN FAILURE [None]
  - INJURY [None]
  - DEATH [None]
  - STRESS [None]
  - RENAL IMPAIRMENT [None]
  - FEAR [None]
  - ANHEDONIA [None]
  - RENAL INJURY [None]
  - ANXIETY [None]
  - RENAL FAILURE [None]
  - PAIN [None]
